FAERS Safety Report 19695302 (Version 1)
Quarter: 2021Q3

REPORT INFORMATION
  Report Type: Spontaneous
  Country: US (occurrence: US)
  Receive Date: 20210813
  Receipt Date: 20210813
  Transmission Date: 20211014
  Serious: Yes (Other)
  Sender: FDA-Public Use
  Company Number: NVSC2021US181711

PATIENT
  Age: 63 Year
  Sex: Male

DRUGS (2)
  1. RANITIDINE. [Suspect]
     Active Substance: RANITIDINE
     Indication: DYSPEPSIA
     Dosage: 300 MG, BID
     Route: 065
     Dates: end: 201801
  2. RANITIDINE. [Suspect]
     Active Substance: RANITIDINE
     Indication: DYSPEPSIA
     Dosage: 300 MG, BID
     Route: 065
     Dates: end: 201801

REACTIONS (2)
  - Oesophageal carcinoma [Unknown]
  - Renal cancer [Recovering/Resolving]

NARRATIVE: CASE EVENT DATE: 20170101
